FAERS Safety Report 17646753 (Version 2)
Quarter: 2022Q2

REPORT INFORMATION
  Report Type: Spontaneous
  Country: US (occurrence: US)
  Receive Date: 20200408
  Receipt Date: 20220412
  Transmission Date: 20220721
  Serious: Yes (Other)
  Sender: FDA-Public Use
  Company Number: US-PFIZER INC-2020140989

PATIENT
  Age: 67 Year
  Sex: Female

DRUGS (1)
  1. XELJANZ [Suspect]
     Active Substance: TOFACITINIB CITRATE
     Dosage: 5 MG

REACTIONS (7)
  - Rheumatoid arthritis [Unknown]
  - Malaise [Unknown]
  - Mobility decreased [Unknown]
  - Finger deformity [Unknown]
  - Foot deformity [Unknown]
  - Pain [Unknown]
  - Osteoporosis [Unknown]
